FAERS Safety Report 6277783-1 (Version None)
Quarter: 2009Q3

REPORT INFORMATION
  Report Type: 
  Country: None (occurrence: None)
  Receive Date: 20090717
  Receipt Date: 20090717
  Transmission Date: 20100115
  Serious: Yes (Other)
  Sender: FDA-Public Use
  Company Number: None

PATIENT
  Age: 54 Year
  Sex: Female
  Weight: 65.7716 kg

DRUGS (1)
  1. CEFTRIAXONE [Suspect]
     Indication: NASAL ABSCESS
     Dosage: 2 GRAMS ONCE DAILY IV DRIP
     Route: 041
     Dates: start: 20090217, end: 20090301

REACTIONS (10)
  - ABDOMINAL PAIN [None]
  - CHILLS [None]
  - COUGH [None]
  - DECREASED APPETITE [None]
  - DIARRHOEA [None]
  - INFUSION RELATED REACTION [None]
  - PRURITUS [None]
  - PYREXIA [None]
  - URTICARIA [None]
  - WEIGHT DECREASED [None]
